FAERS Safety Report 7519502-4 (Version None)
Quarter: 2011Q2

REPORT INFORMATION
  Report Type: 
  Country: None (occurrence: None)
  Receive Date: 20110602
  Receipt Date: 20110519
  Transmission Date: 20111010
  Serious: Yes (Hospitalization)
  Sender: FDA-Public Use
  Company Number: CA-JNJFOC-20110510335

PATIENT
  Sex: Male
  Weight: 91 kg

DRUGS (2)
  1. REMICADE [Suspect]
     Indication: PSORIASIS
     Dosage: 4 DOSES
     Route: 042
     Dates: start: 20090101
  2. REMICADE [Suspect]
     Route: 042
     Dates: start: 20110519

REACTIONS (8)
  - INFUSION RELATED REACTION [None]
  - CHILLS [None]
  - TREMOR [None]
  - CHEST DISCOMFORT [None]
  - DYSPNOEA [None]
  - HEART RATE INCREASED [None]
  - FLUSHING [None]
  - BLOOD PRESSURE INCREASED [None]
